FAERS Safety Report 16821480 (Version 3)
Quarter: 2019Q4

REPORT INFORMATION
  Report Type: Spontaneous
  Country: BE (occurrence: BE)
  Receive Date: 20190918
  Receipt Date: 20191115
  Transmission Date: 20200122
  Serious: Yes (Other)
  Sender: FDA-Public Use
  Company Number: BE-PFIZER INC-2019394771

PATIENT
  Age: 59 Year
  Sex: Female

DRUGS (12)
  1. TRAZODONE [Concomitant]
     Active Substance: TRAZODONE HYDROCHLORIDE
     Dosage: UNK
  2. LAMBIPOL [Suspect]
     Active Substance: LAMOTRIGINE
     Dosage: 25 MG, UNK
     Dates: start: 20191012
  3. PANTOMED [PANTOPRAZOLE SODIUM SESQUIHYDRATE] [Concomitant]
     Active Substance: PANTOPRAZOLE SODIUM
     Dosage: UNK
  4. FEMOSTON LOW [Concomitant]
     Dosage: UNK
  5. EFFEXOR XR [Suspect]
     Active Substance: VENLAFAXINE HYDROCHLORIDE
     Dosage: UNK
  6. L-THYROXINE [LEVOTHYROXINE SODIUM] [Concomitant]
     Active Substance: LEVOTHYROXINE SODIUM
     Dosage: UNK
  7. SEROXAT CR [Suspect]
     Active Substance: PAROXETINE HYDROCHLORIDE
     Dosage: 8 MG, UNK
     Dates: start: 201707
  8. CYMBALTA [Suspect]
     Active Substance: DULOXETINE HYDROCHLORIDE
     Dosage: 90 MG, UNK
  9. CYMBALTA [Suspect]
     Active Substance: DULOXETINE HYDROCHLORIDE
     Dosage: 70 MG, UNK
     Dates: start: 201810
  10. SEROXAT CR [Suspect]
     Active Substance: PAROXETINE HYDROCHLORIDE
     Dosage: 5 MG, UNK
  11. LAMBIPOL [Suspect]
     Active Substance: LAMOTRIGINE
     Dosage: 250 MG, UNK
     Dates: end: 20191012
  12. UNI-TRANXENE [Concomitant]
     Dosage: UNK

REACTIONS (11)
  - Restlessness [Recovered/Resolved]
  - Suicidal ideation [Recovered/Resolved]
  - Mood swings [Recovered/Resolved]
  - Arthralgia [Recovered/Resolved]
  - Abnormal behaviour [Recovered/Resolved]
  - Serotonin syndrome [Recovered/Resolved]
  - Emotional disorder [Recovered/Resolved]
  - Withdrawal syndrome [Recovered/Resolved]
  - Fatigue [Recovered/Resolved]
  - Myalgia [Recovered/Resolved]
  - Therapy non-responder [Recovered/Resolved]

NARRATIVE: CASE EVENT DATE: 201901
